FAERS Safety Report 8956558 (Version 1)
Quarter: 2012Q4

REPORT INFORMATION
  Report Type: 
  Country: BE (occurrence: FR)
  Receive Date: 20121210
  Receipt Date: 20121210
  Transmission Date: 20130627
  Serious: Yes (Other)
  Sender: FDA-Public Use
  Company Number: BE-JNJFOC-20121201734

PATIENT

DRUGS (2)
  1. CONCERTA [Suspect]
     Indication: SUBSTANCE USE
     Route: 048
  2. CONCERTA [Suspect]
     Indication: WEIGHT DECREASED
     Route: 048

REACTIONS (2)
  - Drug abuse [Unknown]
  - Off label use [Unknown]
